FAERS Safety Report 12309988 (Version 1)
Quarter: 2016Q2

REPORT INFORMATION
  Report Type: Spontaneous
  Country: US (occurrence: None)
  Receive Date: 20160426
  Receipt Date: 20160426
  Transmission Date: 20160815
  Serious: No
  Sender: FDA-Public Use
  Company Number: None

PATIENT
  Age: 60 Year
  Sex: Female
  Weight: 122.47 kg

DRUGS (7)
  1. SPIRONALACTONE [Concomitant]
     Active Substance: SPIRONOLACTONE
  2. MULTIVITAMIN [Concomitant]
     Active Substance: VITAMINS
  3. ESTROVEN [Concomitant]
     Active Substance: DIETARY SUPPLEMENT
  4. PRILOSEC [Concomitant]
     Active Substance: OMEPRAZOLE MAGNESIUM
  5. ROPINEROLE [Concomitant]
     Active Substance: ROPINIROLE
  6. CELECOXIB, 200 MG [Suspect]
     Active Substance: CELECOXIB
     Indication: OSTEOARTHRITIS
     Route: 048
     Dates: start: 20150209, end: 20160331
  7. TRAMADOL. [Concomitant]
     Active Substance: TRAMADOL

REACTIONS (2)
  - Drug effect decreased [None]
  - Product substitution issue [None]

NARRATIVE: CASE EVENT DATE: 20160301
